FAERS Safety Report 10430611 (Version 1)
Quarter: 2014Q3

REPORT INFORMATION
  Report Type: Spontaneous
  Country: JP (occurrence: JP)
  Receive Date: 20140904
  Receipt Date: 20140904
  Transmission Date: 20150326
  Serious: Yes (Death)
  Sender: FDA-Public Use
  Company Number: JP-SA-2014SA118939

PATIENT

DRUGS (1)
  1. MYSLEE [Suspect]
     Active Substance: ZOLPIDEM TARTRATE
     Indication: PRODUCT USED FOR UNKNOWN INDICATION
     Dosage: DOSE: LARGE AMOUNT
     Route: 048
     Dates: start: 2009

REACTIONS (2)
  - Crime [Fatal]
  - Overdose [Fatal]

NARRATIVE: CASE EVENT DATE: 2009
